FAERS Safety Report 6032356-0 (Version None)
Quarter: 2008Q4

REPORT INFORMATION
  Report Type: 
  Country: None (occurrence: None)
  Receive Date: 20081222
  Receipt Date: 20081105
  Transmission Date: 20090506
  Serious: No
  Sender: FDA-Public Use
  Company Number: US-WYE-H06703208

PATIENT
  Age: 55 Year
  Sex: Female
  Weight: 54.48 kg

DRUGS (6)
  1. PRISTIQ [Suspect]
     Indication: SYSTEMIC LUPUS ERYTHEMATOSUS
     Dosage: 50 MG 1X PER 1 DAY, ORAL
     Route: 048
     Dates: start: 20081105
  2. KLONOPIN [Concomitant]
  3. DILANTIN [Concomitant]
  4. MESTINON [Concomitant]
  5. NEURONTIN [Concomitant]
  6. MEDROL ACETATE [Concomitant]

REACTIONS (4)
  - CONDITION AGGRAVATED [None]
  - FATIGUE [None]
  - HEADACHE [None]
  - NEUROPATHY PERIPHERAL [None]
